FAERS Safety Report 13302673 (Version 3)
Quarter: 2022Q4

REPORT INFORMATION
  Report Type: Report from Study
  Country: US (occurrence: US)
  Receive Date: 20170307
  Receipt Date: 20221120
  Transmission Date: 20230113
  Serious: Yes (Death, Life-Threatening, Hospitalization, Other)
  Sender: FDA-Public Use
  Company Number: PHHO2017US004465

PATIENT
  Age: 5 Year
  Sex: Female
  Weight: 24.2 kg

DRUGS (19)
  1. ILARIS [Suspect]
     Active Substance: CANAKINUMAB
     Indication: Juvenile idiopathic arthritis
     Dosage: 100 MG, QD
     Route: 058
     Dates: start: 20161207, end: 20161231
  2. KINERET [Suspect]
     Active Substance: ANAKINRA
     Indication: Still^s disease
     Dosage: 0.34 ML, UNK
     Route: 065
     Dates: start: 20150918, end: 201511
  3. KINERET [Suspect]
     Active Substance: ANAKINRA
     Indication: Immunomodulatory therapy
     Dosage: 0.34 ML, UNK
     Route: 065
     Dates: start: 201511, end: 201512
  4. KINERET [Suspect]
     Active Substance: ANAKINRA
     Dosage: 0.34 ML, UNK
     Route: 065
     Dates: start: 201512, end: 201601
  5. KINERET [Suspect]
     Active Substance: ANAKINRA
     Dosage: 0.34 ML, UNK
     Route: 065
     Dates: start: 201601, end: 201603
  6. KINERET [Suspect]
     Active Substance: ANAKINRA
     Dosage: 0.34 ML, UNK
     Route: 065
     Dates: start: 201603, end: 20160415
  7. KINERET [Suspect]
     Active Substance: ANAKINRA
     Dosage: 0.34 ML, UNK
     Route: 065
     Dates: start: 20160415, end: 201605
  8. KINERET [Suspect]
     Active Substance: ANAKINRA
     Dosage: 100 MG, UNK
     Route: 065
     Dates: start: 201605, end: 20160624
  9. KINERET [Suspect]
     Active Substance: ANAKINRA
     Dosage: UNK
     Route: 065
     Dates: start: 20160804, end: 20160812
  10. KINERET [Suspect]
     Active Substance: ANAKINRA
     Dosage: 100 MG, UNK
     Route: 065
     Dates: start: 20160812, end: 20170226
  11. KINERET [Suspect]
     Active Substance: ANAKINRA
     Dosage: 100 MG, UNK
     Route: 065
     Dates: start: 20170226, end: 201704
  12. KINERET [Suspect]
     Active Substance: ANAKINRA
     Dosage: UNK
     Route: 065
     Dates: start: 20170403
  13. FIRST OMEPRAZOLE RX [Concomitant]
     Active Substance: OMEPRAZOLE
     Indication: Product used for unknown indication
     Dosage: 10 MG, QD
     Route: 065
     Dates: start: 20160627, end: 20160701
  14. FIRST OMEPRAZOLE RX [Concomitant]
     Active Substance: OMEPRAZOLE
     Dosage: 20 MG
     Route: 065
     Dates: start: 20160226
  15. SULFAMETHOXAZOLE\TRIMETHOPRIM [Concomitant]
     Active Substance: SULFAMETHOXAZOLE\TRIMETHOPRIM
     Indication: Pain
     Dosage: UNK, PRN
     Route: 065
     Dates: start: 2017
  16. LIDEX [Concomitant]
     Active Substance: FLUOCINONIDE
     Indication: Cellulitis
     Dosage: UNK
     Route: 065
     Dates: start: 20160617
  17. VALCYTE [Concomitant]
     Active Substance: VALGANCICLOVIR HYDROCHLORIDE
     Indication: Prophylaxis
     Dosage: 670 MG
     Route: 065
     Dates: start: 20160629, end: 20160701
  18. VALCYTE [Concomitant]
     Active Substance: VALGANCICLOVIR HYDROCHLORIDE
     Indication: Cytomegalovirus infection
     Dosage: UNK[15 MG/KG/DOSE, TWICW A DAY FOR 14 DAYS (7/15-7/29 AM)]
     Route: 065
     Dates: start: 20160715
  19. METHYLPREDNISOLONE [Concomitant]
     Active Substance: METHYLPREDNISOLONE
     Indication: Juvenile idiopathic arthritis
     Dosage: 600 MG
     Route: 065
     Dates: start: 20160629, end: 20160701

REACTIONS (26)
  - Cardiac arrest [Fatal]
  - Colitis [Fatal]
  - Intestinal dilatation [Fatal]
  - Gastrointestinal haemorrhage [Fatal]
  - Lactic acidosis [Fatal]
  - Coagulopathy [Fatal]
  - Infective glossitis [Fatal]
  - Swollen tongue [Fatal]
  - Malaise [Fatal]
  - Pyrexia [Fatal]
  - Staphylococcal infection [Fatal]
  - Hepatic failure [Fatal]
  - Obstructive airways disorder [Unknown]
  - Haemophagocytic lymphohistiocytosis [Not Recovered/Not Resolved]
  - Blood fibrinogen decreased [Unknown]
  - International normalised ratio [Unknown]
  - Activated partial thromboplastin time prolonged [Unknown]
  - Serum ferritin increased [Unknown]
  - Transaminases increased [Unknown]
  - Lymphadenopathy [Unknown]
  - Pyrexia [Recovered/Resolved]
  - Intra-abdominal pressure increased [Unknown]
  - Cytomegalovirus test positive [Recovered/Resolved]
  - Pneumocystis jirovecii pneumonia [Unknown]
  - Respiratory tract oedema [Not Recovered/Not Resolved]
  - Blood pressure inadequately controlled [Unknown]

NARRATIVE: CASE EVENT DATE: 20170223
